FAERS Safety Report 12318342 (Version 2)
Quarter: 2016Q2

REPORT INFORMATION
  Report Type: Spontaneous
  Country: CH (occurrence: CH)
  Receive Date: 20160429
  Receipt Date: 20160617
  Transmission Date: 20160815
  Serious: Yes (Hospitalization)
  Sender: FDA-Public Use
  Company Number: CH-ABBVIE-16P-151-1617307-00

PATIENT
  Age: 95 Year
  Sex: Female
  Weight: 75 kg

DRUGS (15)
  1. LASIX [Concomitant]
     Active Substance: FUROSEMIDE
     Indication: CARDIAC FAILURE
     Route: 048
     Dates: start: 20160125, end: 20160129
  2. TORASEMIDE [Concomitant]
     Active Substance: TORSEMIDE
     Indication: PRODUCT USED FOR UNKNOWN INDICATION
     Dates: start: 20160130
  3. FOLIC ACID. [Concomitant]
     Active Substance: FOLIC ACID
     Indication: PRODUCT USED FOR UNKNOWN INDICATION
     Route: 048
     Dates: start: 20160126
  4. ZYLORIC [Concomitant]
     Active Substance: ALLOPURINOL
     Indication: PRODUCT USED FOR UNKNOWN INDICATION
     Route: 048
     Dates: end: 20160405
  5. KLACID [Suspect]
     Active Substance: CLARITHROMYCIN
     Indication: PNEUMONIA LEGIONELLA
     Route: 048
     Dates: start: 20160125, end: 20160126
  6. CLEXANE [Interacting]
     Active Substance: ENOXAPARIN SODIUM
     Indication: TRANSIENT ISCHAEMIC ATTACK
     Route: 048
     Dates: start: 20160201, end: 20160308
  7. SINTROM [Interacting]
     Active Substance: ACENOCOUMAROL
     Route: 065
     Dates: start: 20160301
  8. AUGMENTIN [Concomitant]
     Active Substance: AMOXICILLIN\CLAVULANATE POTASSIUM
     Indication: CARDIAC FAILURE
     Route: 041
     Dates: start: 20160125, end: 20160129
  9. ELIQUIS [Interacting]
     Active Substance: APIXABAN
     Indication: TRANSIENT ISCHAEMIC ATTACK
     Route: 048
     Dates: start: 201511, end: 20160126
  10. LYRICA [Concomitant]
     Active Substance: PREGABALIN
     Indication: POST HERPETIC NEURALGIA
     Route: 048
  11. VI-DE 3 [Concomitant]
     Active Substance: CHOLECALCIFEROL
     Indication: PRODUCT USED FOR UNKNOWN INDICATION
     Route: 048
  12. ATORVASTATIN [Interacting]
     Active Substance: ATORVASTATIN
     Indication: TRANSIENT ISCHAEMIC ATTACK
     Route: 048
     Dates: start: 201511, end: 20160125
  13. AUGMENTIN [Concomitant]
     Active Substance: AMOXICILLIN\CLAVULANATE POTASSIUM
     Route: 048
     Dates: start: 20160129, end: 20160130
  14. ATORVASTATIN [Interacting]
     Active Substance: ATORVASTATIN
     Route: 048
     Dates: start: 20160126
  15. SINTROM [Interacting]
     Active Substance: ACENOCOUMAROL
     Indication: TRANSIENT ISCHAEMIC ATTACK
     Route: 048
     Dates: start: 20160205, end: 20160212

REACTIONS (3)
  - Muscle haemorrhage [Recovered/Resolved]
  - Catheter site haemorrhage [Recovered/Resolved]
  - Haematuria [Recovered/Resolved]

NARRATIVE: CASE EVENT DATE: 20160126
